FAERS Safety Report 10818599 (Version 5)
Quarter: 2015Q2

REPORT INFORMATION
  Report Type: Spontaneous
  Country: IT (occurrence: IT)
  Receive Date: 20150218
  Receipt Date: 20150623
  Transmission Date: 20150821
  Serious: Yes (Hospitalization)
  Sender: FDA-Public Use
  Company Number: IT-PFIZER INC-2015057875

PATIENT
  Age: 85 Year
  Sex: Female

DRUGS (12)
  1. NORVASC [Suspect]
     Active Substance: AMLODIPINE BESYLATE
     Indication: DRUG ABUSE
     Dosage: 10 MG, SINGLE (TOTAL)
     Route: 048
     Dates: start: 20150121, end: 20150121
  2. TORVAST [Suspect]
     Active Substance: ATORVASTATIN
     Dosage: 40 MG, DAILY
     Route: 048
  3. NOVONORM [Suspect]
     Active Substance: REPAGLINIDE
     Indication: DRUG ABUSE
     Dosage: 4 MG, SINGLE (TOTAL)
     Route: 048
     Dates: start: 20150121, end: 20150121
  4. ATENOL [Suspect]
     Active Substance: ATENOLOL
     Indication: DRUG ABUSE
     Dosage: 200 MG, SINGLE (TOTAL)
     Route: 048
     Dates: start: 20150121, end: 20150121
  5. ATENOL [Suspect]
     Active Substance: ATENOLOL
     Dosage: 100 MG, DAILY
     Route: 048
  6. TORVAST [Suspect]
     Active Substance: ATORVASTATIN
     Indication: DRUG ABUSE
     Dosage: 80 MG, SINGLE (TOTAL)
     Route: 048
     Dates: start: 20150121, end: 20150121
  7. TRIATEC [Suspect]
     Active Substance: RAMIPRIL
     Dosage: 10 MG, DAILY
     Route: 048
  8. TRIATEC [Suspect]
     Active Substance: RAMIPRIL
     Indication: DRUG ABUSE
     Dosage: 20 MG, SINGLE (TOTAL)
     Route: 048
     Dates: start: 20150121, end: 20150121
  9. NOVONORM [Suspect]
     Active Substance: REPAGLINIDE
     Dosage: 2 MG, DAILY
     Route: 048
  10. CARDURA [Suspect]
     Active Substance: DOXAZOSIN MESYLATE
     Dosage: 4 MG, DAILY
     Route: 048
  11. NORVASC [Suspect]
     Active Substance: AMLODIPINE BESYLATE
     Dosage: 5 MG, DAILY
     Route: 048
  12. CARDURA [Suspect]
     Active Substance: DOXAZOSIN MESYLATE
     Indication: DRUG ABUSE
     Dosage: 8 MG, SINGLE (TOTAL)
     Route: 048
     Dates: start: 20150121, end: 20150121

REACTIONS (2)
  - Confusional state [Recovered/Resolved]
  - Drug abuse [Recovered/Resolved]

NARRATIVE: CASE EVENT DATE: 20150121
